FAERS Safety Report 8689458 (Version 3)
Quarter: 2012Q4

REPORT INFORMATION
  Report Type: Report from Study
  Country: DE (occurrence: DE)
  Receive Date: 20120727
  Receipt Date: 20121228
  Transmission Date: 20130627
  Serious: Yes (Hospitalization, Other)
  Sender: FDA-Public Use
  Company Number: DE-ABBOTT-12P-062-0959287-00

PATIENT
  Sex: Female
  Weight: 80 kg

DRUGS (5)
  1. HUMIRA 40 MG/ 0.8 ML PRE-FILLED SYRINGE [Suspect]
     Indication: PSORIATIC ARTHROPATHY
     Route: 058
     Dates: start: 20080728
  2. HUMIRA 40 MG/ 0.8 ML PRE-FILLED SYRINGE [Suspect]
     Route: 058
     Dates: end: 201210
  3. INSULINE [Concomitant]
     Indication: PRODUCT USED FOR UNKNOWN INDICATION
  4. TARGIN 40/10 [Concomitant]
  5. NOLVALGIN [Concomitant]

REACTIONS (2)
  - Pain [Not Recovered/Not Resolved]
  - Dementia Alzheimer^s type [Not Recovered/Not Resolved]
